FAERS Safety Report 22266330 (Version 1)
Quarter: 2023Q2

REPORT INFORMATION
  Report Type: Spontaneous
  Country: ES (occurrence: ES)
  Receive Date: 20230428
  Receipt Date: 20230428
  Transmission Date: 20230722
  Serious: Yes (Hospitalization)
  Sender: FDA-Public Use
  Company Number: None

PATIENT
  Age: 78 Year
  Sex: Male

DRUGS (5)
  1. BISOPROLOL [Interacting]
     Active Substance: BISOPROLOL
     Indication: Cardiac failure
     Dosage: (2328A)
     Route: 065
     Dates: start: 20221223
  2. VENETOCLAX [Interacting]
     Active Substance: VENETOCLAX
     Indication: Lymphocytic lymphoma
     Dosage: 14 TABLETS
     Route: 065
     Dates: start: 20230118
  3. DILTIAZEM HYDROCHLORIDE [Interacting]
     Active Substance: DILTIAZEM HYDROCHLORIDE
     Indication: Cardiac failure
     Dosage: 40 TABLETS
     Route: 065
     Dates: start: 20221201, end: 20230117
  4. METHYLPREDNISOLONE HEMISUCCINATE [Interacting]
     Active Substance: METHYLPREDNISOLONE HEMISUCCINATE
     Indication: Hypercalcaemia
     Dosage: (888SD)
     Route: 065
     Dates: start: 20221221, end: 20221227
  5. OBINUTUZUMAB [Interacting]
     Active Substance: OBINUTUZUMAB
     Indication: Lymphocytic lymphoma
     Dosage: 1 VIAL OF 40 ML
     Route: 065
     Dates: start: 20221228, end: 20230104

REACTIONS (3)
  - Cardiac failure [Recovered/Resolved]
  - Cardiac failure [Recovered/Resolved]
  - Drug interaction [Unknown]

NARRATIVE: CASE EVENT DATE: 20230118
